FAERS Safety Report 4773421-5 (Version None)
Quarter: 2005Q3

REPORT INFORMATION
  Report Type: 
  Country: None (occurrence: None)
  Receive Date: 20050920
  Receipt Date: 20050908
  Transmission Date: 20060218
  Serious: Yes (Other)
  Sender: FDA-Public Use
  Company Number: CA-JNJFOC-20050507402

PATIENT
  Sex: Female
  Weight: 49.6 kg

DRUGS (12)
  1. REMICADE [Suspect]
     Dosage: SECOND TREATMENT
     Route: 042
  2. REMICADE [Suspect]
     Indication: RHEUMATOID ARTHRITIS
     Dosage: FIRST INFUSION
     Route: 042
  3. ESTROGEL [Suspect]
     Indication: MENOPAUSAL SYMPTOMS
     Dosage: 2 DOSE= 2 PUMPS
     Route: 062
  4. PROMETRIUM [Suspect]
     Indication: MENOPAUSAL SYMPTOMS
     Dosage: DURATION = ^OVER 5 YEARS^
  5. IMMOVAN [Concomitant]
     Indication: INSOMNIA
     Route: 048
  6. CORTISONE ACETATE TAB [Concomitant]
     Indication: RHEUMATOID ARTHRITIS
     Route: 048
  7. TYLENOL [Concomitant]
     Indication: RHEUMATOID ARTHRITIS
     Route: 048
  8. IBUPROFEN [Concomitant]
     Indication: RHEUMATOID ARTHRITIS
     Route: 048
  9. HORMONE [Concomitant]
     Indication: MENOPAUSE
     Route: 048
  10. PREDNISONE [Concomitant]
     Indication: DRUG USE FOR UNKNOWN INDICATION
  11. METHOTREXATE [Concomitant]
     Indication: DRUG USE FOR UNKNOWN INDICATION
  12. NEORAL [Concomitant]
     Indication: DRUG USE FOR UNKNOWN INDICATION

REACTIONS (6)
  - APHASIA [None]
  - BRADYPHRENIA [None]
  - FATIGUE [None]
  - GAIT DISTURBANCE [None]
  - HYPOAESTHESIA [None]
  - PARAESTHESIA [None]
